FAERS Safety Report 5133273-0 (Version None)
Quarter: 2006Q4

REPORT INFORMATION
  Report Type: 
  Country: None (occurrence: None)
  Receive Date: 20060831
  Receipt Date: 20060720
  Transmission Date: 20070319
  Serious: No
  Sender: FDA-Public Use
  Company Number: 2006-BP-08407BP

PATIENT
  Age: 68 Year
  Sex: Female

DRUGS (5)
  1. SPIRIVA [Suspect]
     Indication: BRONCHITIS
     Dosage: SEE IMAGE
     Dates: start: 20060717, end: 20060717
  2. SPIRIVA [Suspect]
     Indication: BRONCHITIS
     Dosage: SEE IMAGE
     Dates: start: 20060719, end: 20060719
  3. IBESARTAN [Concomitant]
  4. HYDROCHLOROTHIAZIDE [Concomitant]
  5. EVISTA [Concomitant]

REACTIONS (3)
  - DYSGEUSIA [None]
  - FATIGUE [None]
  - NAUSEA [None]
